FAERS Safety Report 17493169 (Version 2)
Quarter: 2020Q1

REPORT INFORMATION
  Report Type: Spontaneous
  Country: US (occurrence: US)
  Receive Date: 20200304
  Receipt Date: 20200319
  Transmission Date: 20200409
  Serious: Yes (Death, Other)
  Sender: FDA-Public Use
  Company Number: US-GLAXOSMITHKLINE-US2020GSK037226

PATIENT
  Age: 83 Year
  Sex: Female

DRUGS (3)
  1. ESOMEPRAZOLE. [Suspect]
     Active Substance: ESOMEPRAZOLE MAGNESIUM
     Indication: GASTROOESOPHAGEAL REFLUX DISEASE
     Dosage: 40 MG, QD
     Route: 048
     Dates: start: 20150321, end: 20170616
  2. LANSOPRAZOLE. [Suspect]
     Active Substance: LANSOPRAZOLE
     Indication: GASTROOESOPHAGEAL REFLUX DISEASE
     Dosage: 30 MG, QD
     Route: 065
     Dates: start: 20110921, end: 20111112
  3. PANTOPRAZOLE [Suspect]
     Active Substance: PANTOPRAZOLE
     Indication: GASTROOESOPHAGEAL REFLUX DISEASE
     Dosage: 40 MG, QD
     Route: 048
     Dates: start: 20170307, end: 20171114

REACTIONS (15)
  - Abdominal tenderness [Unknown]
  - Chronic gastritis [Unknown]
  - Abdominal neoplasm [Unknown]
  - Diverticulitis [Unknown]
  - Abdominal pain upper [Unknown]
  - Vomiting [Unknown]
  - Diverticulum intestinal [Unknown]
  - Diabetic gastroparesis [Unknown]
  - Abdominal pain [Unknown]
  - Gastritis [Unknown]
  - Abdominal mass [Unknown]
  - Gastric cancer [Fatal]
  - Abdominal discomfort [Unknown]
  - Nausea [Unknown]
  - Gastrointestinal disorder [Unknown]

NARRATIVE: CASE EVENT DATE: 20110921
